FAERS Safety Report 13316465 (Version 3)
Quarter: 2017Q2

REPORT INFORMATION
  Report Type: Spontaneous
  Country: JP (occurrence: JP)
  Receive Date: 20170308
  Receipt Date: 20170413
  Transmission Date: 20170830
  Serious: No
  Sender: FDA-Public Use
  Company Number: JP-ASTRAZENECA-2017SE23864

PATIENT
  Age: 29875 Day
  Sex: Female

DRUGS (5)
  1. LIMAPROST ALFADEX [Concomitant]
     Active Substance: LIMAPROST
     Indication: LUMBAR SPINAL STENOSIS
     Route: 048
     Dates: start: 20170208
  2. NEXIUM [Suspect]
     Active Substance: ESOMEPRAZOLE MAGNESIUM
     Indication: PROPHYLAXIS AGAINST GASTROINTESTINAL ULCER
     Route: 048
     Dates: start: 20160912, end: 20170301
  3. LOXONIN [Concomitant]
     Active Substance: LOXOPROFEN SODIUM
     Indication: OSTEOARTHRITIS
     Route: 048
     Dates: start: 20160912
  4. MUCOSTA [Concomitant]
     Active Substance: REBAMIPIDE
     Indication: OSTEOARTHRITIS
     Route: 048
     Dates: start: 20160912
  5. ARTZ DISPO [Concomitant]
     Indication: OSTEOARTHRITIS
     Route: 013
     Dates: start: 20160921

REACTIONS (1)
  - Chromaturia [Recovered/Resolved]

NARRATIVE: CASE EVENT DATE: 20170301
